FAERS Safety Report 22301530 (Version 1)
Quarter: 2023Q2

REPORT INFORMATION
  Report Type: Report from Study
  Country: US (occurrence: US)
  Receive Date: 20230510
  Receipt Date: 20230510
  Transmission Date: 20230721
  Serious: Yes (Hospitalization, Other)
  Sender: FDA-Public Use
  Company Number: US-ABBVIE-4328193

PATIENT
  Age: 38 Year
  Sex: Female

DRUGS (1)
  1. ORILISSA [Suspect]
     Active Substance: ELAGOLIX SODIUM
     Indication: Endometriosis
     Dosage: 200 MILLIGRAM
     Route: 048
     Dates: start: 202302

REACTIONS (4)
  - Immune thrombocytopenia [Not Recovered/Not Resolved]
  - Headache [Unknown]
  - Hot flush [Unknown]
  - COVID-19 [Unknown]

NARRATIVE: CASE EVENT DATE: 20230301
